FAERS Safety Report 12395291 (Version 1)
Quarter: 2016Q2

REPORT INFORMATION
  Report Type: Spontaneous
  Country: DE (occurrence: DE)
  Receive Date: 20160523
  Receipt Date: 20160523
  Transmission Date: 20160815
  Serious: Yes (Life-Threatening)
  Sender: FDA-Public Use
  Company Number: DE-GLAXOSMITHKLINE-DE2016GSK058527

PATIENT
  Age: 67 Year
  Sex: Female

DRUGS (1)
  1. VOLTAREN SCHMERZGEL FORTE [Suspect]
     Active Substance: DICLOFENAC DIETHYLAMINE
     Indication: MUSCULOSKELETAL PAIN
     Dosage: SINGLE DOSE TAKEN
     Dates: start: 20160420, end: 20160421

REACTIONS (6)
  - Blood pressure decreased [Recovered/Resolved]
  - Dizziness [Recovered/Resolved]
  - Unevaluable event [Recovered/Resolved]
  - Incorrect dose administered [Unknown]
  - Dyspnoea [Recovered/Resolved]
  - Hypersensitivity [Recovered/Resolved]

NARRATIVE: CASE EVENT DATE: 20160420
